FAERS Safety Report 4822783-9 (Version None)
Quarter: 2005Q4

REPORT INFORMATION
  Report Type: 
  Country: None (occurrence: None)
  Receive Date: 20051108
  Receipt Date: 20050222
  Transmission Date: 20060501
  Serious: Yes (Other)
  Sender: FDA-Public Use
  Company Number: GR-GILEAD-2005-0008086

PATIENT
  Sex: Male
  Weight: 62.5 kg

DRUGS (1)
  1. HEPSERA [Suspect]
     Route: 048
     Dates: start: 20021017, end: 20050125

REACTIONS (2)
  - BLOOD CHOLESTEROL INCREASED [None]
  - PANCREATITIS [None]
